FAERS Safety Report 5847857-5 (Version None)
Quarter: 2008Q3

REPORT INFORMATION
  Report Type: 
  Country: None (occurrence: None)
  Receive Date: 20080814
  Receipt Date: 20080814
  Transmission Date: 20090109
  Serious: Yes (Other)
  Sender: FDA-Public Use
  Company Number: None

PATIENT
  Age: 36 Year
  Sex: Male
  Weight: 110 kg

DRUGS (2)
  1. ALOPRIM [Suspect]
     Indication: PROPHYLAXIS
     Dosage: 100 MG DAILY INTRACAVERNOUS
     Route: 017
     Dates: start: 20080719, end: 20080720
  2. ALOPRIM [Suspect]
     Indication: TUMOUR LYSIS SYNDROME
     Dosage: 100 MG DAILY INTRACAVERNOUS
     Route: 017
     Dates: start: 20080719, end: 20080720

REACTIONS (4)
  - ARTHRALGIA [None]
  - EOSINOPHILIA [None]
  - LEUKOCYTOSIS [None]
  - RASH MACULO-PAPULAR [None]
